FAERS Safety Report 6584455-2 (Version None)
Quarter: 2010Q1

REPORT INFORMATION
  Report Type: 
  Country: None (occurrence: None)
  Receive Date: 20100216
  Receipt Date: 20100212
  Transmission Date: 20100710
  Serious: No
  Sender: FDA-Public Use
  Company Number: US-ABBOTT-10P-163-0626031-00

PATIENT
  Sex: Female
  Weight: 94.432 kg

DRUGS (4)
  1. SIMCOR [Suspect]
     Indication: LOW DENSITY LIPOPROTEIN INCREASED
     Dates: start: 20100128
  2. SIMCOR [Suspect]
     Indication: BLOOD TRIGLYCERIDES
  3. SIMCOR [Suspect]
     Indication: HIGH DENSITY LIPOPROTEIN DECREASED
  4. ASPIRIN [Concomitant]
     Indication: DRUG USE FOR UNKNOWN INDICATION

REACTIONS (3)
  - MIDDLE INSOMNIA [None]
  - MUSCLE SPASMS [None]
  - SKIN BURNING SENSATION [None]
